FAERS Safety Report 10258360 (Version 1)
Quarter: 2014Q2

REPORT INFORMATION
  Report Type: Spontaneous
  Country: US (occurrence: US)
  Receive Date: 20140625
  Receipt Date: 20140625
  Transmission Date: 20141212
  Serious: Yes (Hospitalization, Other)
  Sender: FDA-Public Use
  Company Number: US-PFIZER INC-2014169201

PATIENT
  Age: 34 Year
  Sex: Female
  Weight: 31.74 kg

DRUGS (3)
  1. GENOTROPIN MINIQUICK [Suspect]
     Indication: HORMONE THERAPY
     Dosage: 0.8 MG, 1X/DAY
     Dates: start: 20130915, end: 201309
  2. DETROL [Concomitant]
     Indication: BLADDER IRRITATION
     Dosage: 4 MG, 1X/DAY
  3. BABY ASPIRIN [Concomitant]
     Indication: PAIN
     Dosage: 81 MG, 1X/DAY

REACTIONS (4)
  - Cardiac failure congestive [Recovered/Resolved]
  - Pericardial effusion [Recovered/Resolved]
  - Peripheral swelling [Recovered/Resolved]
  - Weight increased [Recovered/Resolved]
